FAERS Safety Report 5158494-2 (Version None)
Quarter: 2006Q4

REPORT INFORMATION
  Report Type: 
  Country: None (occurrence: None)
  Receive Date: 20061116
  Receipt Date: 20061110
  Transmission Date: 20070319
  Serious: Yes (Other)
  Sender: FDA-Public Use
  Company Number: 920#8#2006-00005

PATIENT
  Age: 37 Year
  Sex: Female

DRUGS (4)
  1. NIFEDIPINE [Suspect]
     Indication: TOCOLYSIS
     Dosage: 40MG, 1 IN 6 H, ORAL
     Route: 048
  2. NIFEDIPINE [Suspect]
     Indication: TOCOLYSIS
     Dosage: 20 MG, 2 IN 1 D, SUBLINGUAL
     Route: 060
  3. CLARITHROMYCIN [Concomitant]
  4. BETAMETHASONE [Concomitant]

REACTIONS (10)
  - ACUTE PULMONARY OEDEMA [None]
  - CAESAREAN SECTION [None]
  - DRUG EXPOSURE DURING PREGNANCY [None]
  - EJECTION FRACTION DECREASED [None]
  - FLUID OVERLOAD [None]
  - OBSTETRIC PROCEDURE COMPLICATION [None]
  - PROCEDURAL COMPLICATION [None]
  - RESPIRATORY ALKALOSIS [None]
  - SINUS TACHYCARDIA [None]
  - SODIUM RETENTION [None]
